FAERS Safety Report 8004870-X (Version None)
Quarter: 2011Q4

REPORT INFORMATION
  Report Type: 
  Country: None (occurrence: None)
  Receive Date: 20111223
  Receipt Date: 20111223
  Transmission Date: 20120403
  Serious: Yes (Other)
  Sender: FDA-Public Use
  Company Number: None

PATIENT
  Sex: Male
  Weight: 71.8 kg

DRUGS (2)
  1. OXALIPLATIN [Suspect]
     Dosage: 156MG
     Route: 042
  2. LEUCOVORIN CALCIUM [Concomitant]

REACTIONS (2)
  - BLADDER PAIN [None]
  - RENAL COLIC [None]
